FAERS Safety Report 7177328-8 (Version None)
Quarter: 2010Q4

REPORT INFORMATION
  Report Type: 
  Country: None (occurrence: None)
  Receive Date: 20101216
  Receipt Date: 20101216
  Transmission Date: 20110411
  Serious: No
  Sender: FDA-Public Use
  Company Number: None

PATIENT
  Sex: Female
  Weight: 67.1324 kg

DRUGS (1)
  1. XENAZINE [Suspect]
     Dosage: 25MG 2X DAY

REACTIONS (7)
  - BLOOD PRESSURE INCREASED [None]
  - CRYING [None]
  - DEPRESSION [None]
  - DIZZINESS [None]
  - HEADACHE [None]
  - MIGRAINE [None]
  - MOOD SWINGS [None]
